FAERS Safety Report 9415041 (Version 3)
Quarter: 2013Q4

REPORT INFORMATION
  Report Type: Report from Study
  Country: US (occurrence: US)
  Receive Date: 20130723
  Receipt Date: 20131015
  Transmission Date: 20140711
  Serious: Yes (Hospitalization)
  Sender: FDA-Public Use
  Company Number: US-ROCHE-1251706

PATIENT
  Age: 48 Year
  Sex: Female
  Weight: 61.29 kg

DRUGS (1)
  1. ACTEMRA [Suspect]
     Indication: RHEUMATOID ARTHRITIS
     Dosage: FREQUENCY: 4-7 WEEKS
     Route: 042

REACTIONS (7)
  - Syncope [Recovering/Resolving]
  - Face injury [Recovering/Resolving]
  - Rib fracture [Recovering/Resolving]
  - Rash [Recovered/Resolved]
  - Therapeutic response decreased [Unknown]
  - Pain [Unknown]
  - Arthralgia [Recovering/Resolving]
